FAERS Safety Report 16407502 (Version 1)
Quarter: 2019Q2

REPORT INFORMATION
  Report Type: Spontaneous
  Country: US (occurrence: US)
  Receive Date: 20190608
  Receipt Date: 20190608
  Transmission Date: 20190711
  Serious: Yes (Other)
  Sender: FDA-Public Use
  Company Number: US-ELI_LILLY_AND_COMPANY-US201906001607

PATIENT

DRUGS (1)
  1. PROZAC [Suspect]
     Active Substance: FLUOXETINE HYDROCHLORIDE
     Indication: PRODUCT USED FOR UNKNOWN INDICATION
     Dosage: UNK, UNKNOWN
     Route: 065

REACTIONS (8)
  - Panic attack [Unknown]
  - Insomnia [Unknown]
  - Pain [Unknown]
  - Anxiety [Unknown]
  - Malaise [Unknown]
  - Suicidal ideation [Unknown]
  - Rosacea [Unknown]
  - Depressed mood [Unknown]
